FAERS Safety Report 8791684 (Version 1)
Quarter: 2012Q4

REPORT INFORMATION
  Report Type: 
  Country: SE (occurrence: SE)
  Receive Date: 20120918
  Receipt Date: 20120918
  Transmission Date: 20130627
  Serious: Yes (Hospitalization)
  Sender: FDA-Public Use
  Company Number: SE-PFIZER INC-2012226683

PATIENT
  Age: 94 Year
  Sex: Male
  Weight: 88 kg

DRUGS (16)
  1. GENOTROPIN [Suspect]
     Indication: HYPOPITUITARISM
     Dosage: 0.2 mg, 7/wk
     Route: 058
     Dates: start: 19981208
  2. TESTOSTERONE [Concomitant]
     Indication: BLOOD LUTEINISING HORMONE DECREASED
     Dosage: UNK
     Dates: start: 19930101
  3. TESTOSTERONE [Concomitant]
     Indication: BLOOD FOLLICLE STIMULATING HORMONE DECREASED
  4. TESTOSTERONE [Concomitant]
     Indication: HYPOGONADISM MALE
  5. HYDROCORTISONE [Concomitant]
     Indication: BLOOD CORTICOTROPHIN DECREASED
     Dosage: UNK
     Dates: start: 19930715
  6. LIPITOR [Concomitant]
     Indication: HYPERLIPIDAEMIA
     Dosage: UNK
     Dates: start: 19970515
  7. ZYLORIC [Concomitant]
     Indication: GOUTY ARTHRITIS
     Dosage: UNK
     Dates: start: 19980215
  8. NITROMEX [Concomitant]
     Indication: CARDIOVASCULAR DISORDER
     Dosage: UNK
     Dates: start: 19980515
  9. TROMBYL [Concomitant]
     Indication: PLATELET DISORDER
     Dosage: UNK
     Dates: start: 19980915
  10. PLAVIX [Concomitant]
     Indication: PLATELET DISORDER
     Dosage: UNK
     Dates: start: 19990115
  11. CALCICHEW [Concomitant]
     Indication: VITAMIN D DEFICIENCY
     Dosage: UNK
     Dates: start: 19990921
  12. LEVAXIN [Concomitant]
     Indication: BLOOD THYROID STIMULATING HORMONE DECREASED
     Dosage: UNK
     Dates: start: 19930715
  13. LEVAXIN [Concomitant]
     Indication: PRIMARY HYPOTHYROIDISM
  14. DIOVAN [Concomitant]
     Indication: HYPERTENSION
     Dosage: UNK
     Dates: start: 20050620
  15. AVODART [Concomitant]
     Indication: PROSTATIC DISORDER
     Dosage: UNK
     Dates: start: 20050425
  16. SONATA [Concomitant]
     Indication: INSOMNIA
     Dosage: UNK
     Dates: start: 20050526

REACTIONS (1)
  - Cardiac disorder [Unknown]
